FAERS Safety Report 8910400 (Version 2)
Quarter: 2013Q2

REPORT INFORMATION
  Report Type: Spontaneous
  Country: US (occurrence: US)
  Receive Date: 20121115
  Receipt Date: 20130523
  Transmission Date: 20140414
  Serious: Yes (Other)
  Sender: FDA-Public Use
  Company Number: US-PAR PHARMACEUTICAL, INC-2012SCPR004703

PATIENT
  Sex: 0

DRUGS (1)
  1. BUPROPION HCL XL TABLETS [Suspect]
     Indication: DEPRESSION
     Dosage: UNK, UNKNOWN
     Route: 065

REACTIONS (3)
  - Depression [Unknown]
  - Drug ineffective [Unknown]
  - Product quality issue [Unknown]
